FAERS Safety Report 4481941-6 (Version None)
Quarter: 2004Q4

REPORT INFORMATION
  Report Type: 
  Country: None (occurrence: None)
  Receive Date: 20041020
  Receipt Date: 20041005
  Transmission Date: 20050328
  Serious: Yes (Hospitalization)
  Sender: FDA-Public Use
  Company Number: EWC041040948

PATIENT
  Age: 65 Year
  Sex: Female

DRUGS (2)
  1. OLANZAPINE [Suspect]
     Indication: BIPOLAR DISORDER
     Dosage: 20 MG DAY
     Dates: start: 20030301, end: 20040924
  2. OLANZAPINE [Suspect]
     Indication: SCHIZOAFFECTIVE DISORDER
     Dosage: 20 MG DAY
     Dates: start: 20030301, end: 20040924

REACTIONS (9)
  - BLOOD CREATINE PHOSPHOKINASE INCREASED [None]
  - DRUG TOXICITY [None]
  - FEMUR FRACTURE [None]
  - INJURY [None]
  - LEUKOCYTOSIS [None]
  - MUCOSAL DRYNESS [None]
  - NEUROLEPTIC MALIGNANT SYNDROME [None]
  - POST PROCEDURAL COMPLICATION [None]
  - TREMOR [None]
